FAERS Safety Report 8661040 (Version 3)
Quarter: 2012Q4

REPORT INFORMATION
  Report Type: Report from Study
  Country: JP (occurrence: JP)
  Receive Date: 20120711
  Receipt Date: 20121003
  Transmission Date: 20130627
  Serious: Yes (Life-Threatening, Disabling, Other)
  Sender: FDA-Public Use
  Company Number: JP-ROCHE-1082831

PATIENT
  Age: 44 Year
  Sex: Female

DRUGS (58)
  1. TOCILIZUMAB [Suspect]
     Indication: CASTLEMAN^S DISEASE
     Route: 041
     Dates: start: 20090202, end: 20091023
  2. TOCILIZUMAB [Interacting]
     Indication: CASTLEMAN^S DISEASE
     Route: 041
     Dates: start: 20091120, end: 20100409
  3. TOCILIZUMAB [Interacting]
     Indication: CASTLEMAN^S DISEASE
     Route: 041
     Dates: start: 20100514, end: 20100618
  4. TOCILIZUMAB [Interacting]
     Indication: CASTLEMAN^S DISEASE
     Route: 041
     Dates: start: 20100716, end: 20100820
  5. TOCILIZUMAB [Interacting]
     Indication: CASTLEMAN^S DISEASE
     Route: 041
     Dates: start: 20100917, end: 20101126
  6. TOCILIZUMAB [Interacting]
     Indication: CASTLEMAN^S DISEASE
     Route: 041
     Dates: start: 20101207
  7. WARFARIN [Interacting]
     Indication: PRODUCT USED FOR UNKNOWN INDICATION
     Route: 048
     Dates: end: 20101201
  8. WARFARIN [Interacting]
     Route: 048
     Dates: start: 20101202, end: 20110217
  9. WARFARIN [Interacting]
     Route: 048
     Dates: start: 20110218, end: 20110427
  10. WARFARIN [Interacting]
     Route: 048
     Dates: start: 20110428, end: 20110813
  11. WARFARIN [Interacting]
     Route: 048
     Dates: start: 20110814
  12. LASIX [Suspect]
     Indication: OEDEMA PERIPHERAL
     Route: 048
     Dates: end: 20100916
  13. LASIX [Suspect]
     Indication: OEDEMA PERIPHERAL
     Route: 048
     Dates: start: 20100917, end: 20110113
  14. LASIX [Suspect]
     Indication: OEDEMA PERIPHERAL
     Route: 048
     Dates: start: 20110114, end: 20110217
  15. LASIX [Suspect]
     Indication: OEDEMA PERIPHERAL
     Route: 048
     Dates: start: 20110218, end: 20110817
  16. LASIX [Suspect]
     Indication: OEDEMA PERIPHERAL
     Route: 048
     Dates: start: 20110818
  17. PREDNISOLONE [Concomitant]
     Indication: CASTLEMAN^S DISEASE
     Route: 048
     Dates: end: 20090611
  18. PREDNISOLONE [Concomitant]
     Indication: CASTLEMAN^S DISEASE
     Route: 048
     Dates: start: 20090612, end: 20090709
  19. PREDNISOLONE [Concomitant]
     Indication: CASTLEMAN^S DISEASE
     Route: 048
     Dates: start: 20090710, end: 20090806
  20. PREDNISOLONE [Concomitant]
     Indication: CASTLEMAN^S DISEASE
     Route: 048
     Dates: start: 20090807, end: 20090917
  21. PREDNISOLONE [Concomitant]
     Indication: CASTLEMAN^S DISEASE
     Route: 048
     Dates: start: 20090918, end: 20100916
  22. PREDNISOLONE [Concomitant]
     Indication: CASTLEMAN^S DISEASE
     Route: 048
     Dates: start: 20100917, end: 20101014
  23. PREDNISOLONE [Concomitant]
     Indication: CASTLEMAN^S DISEASE
     Route: 048
     Dates: start: 20101015, end: 20101111
  24. PREDNISOLONE [Concomitant]
     Indication: CASTLEMAN^S DISEASE
     Route: 048
     Dates: start: 20101112, end: 20101201
  25. PREDNISOLONE [Concomitant]
     Indication: CASTLEMAN^S DISEASE
     Route: 048
     Dates: start: 20101202, end: 20101216
  26. PREDNISOLONE [Concomitant]
     Indication: CASTLEMAN^S DISEASE
     Route: 048
     Dates: start: 20101217, end: 20101227
  27. PREDNISOLONE [Concomitant]
     Indication: CASTLEMAN^S DISEASE
     Route: 048
     Dates: start: 20101228, end: 20110217
  28. PREDNISOLONE [Concomitant]
     Indication: CASTLEMAN^S DISEASE
     Route: 048
     Dates: start: 20110218, end: 20110317
  29. PREDNISOLONE [Concomitant]
     Indication: CASTLEMAN^S DISEASE
     Route: 048
     Dates: start: 20110318, end: 20110331
  30. PREDNISOLONE [Concomitant]
     Indication: CASTLEMAN^S DISEASE
     Route: 048
     Dates: start: 20110401, end: 20110425
  31. PREDNISOLONE [Concomitant]
     Indication: CASTLEMAN^S DISEASE
     Route: 048
     Dates: start: 20110426, end: 20110526
  32. PREDNISOLONE [Concomitant]
     Indication: CASTLEMAN^S DISEASE
     Route: 048
     Dates: start: 20110527, end: 20110623
  33. PREDNISOLONE [Concomitant]
     Indication: CASTLEMAN^S DISEASE
     Route: 048
     Dates: start: 20110624, end: 20110808
  34. PREDNISOLONE [Concomitant]
     Indication: CASTLEMAN^S DISEASE
     Route: 048
     Dates: start: 20110809, end: 20111004
  35. PREDNISOLONE [Concomitant]
     Indication: CASTLEMAN^S DISEASE
     Route: 048
     Dates: start: 20111005, end: 20111101
  36. PREDNISOLONE [Concomitant]
     Indication: CASTLEMAN^S DISEASE
     Route: 048
     Dates: start: 20111102, end: 20111220
  37. PREDNISOLONE [Concomitant]
     Indication: CASTLEMAN^S DISEASE
     Route: 048
     Dates: start: 20111221, end: 20120117
  38. PREDNISOLONE [Concomitant]
     Indication: CASTLEMAN^S DISEASE
     Route: 048
     Dates: start: 20120118
  39. OMEPRAL [Concomitant]
     Indication: PROPHYLAXIS
     Route: 048
     Dates: end: 20100115
  40. BONALON [Concomitant]
     Indication: PROPHYLAXIS
     Route: 048
  41. HYPEN [Concomitant]
     Route: 048
     Dates: end: 20091120
  42. MUCOSTA [Concomitant]
     Indication: PROPHYLAXIS
     Route: 048
     Dates: end: 20091120
  43. BAKTAR [Concomitant]
     Indication: PROPHYLAXIS
     Route: 048
     Dates: end: 20100312
  44. BAKTAR [Concomitant]
     Indication: PROPHYLAXIS
     Route: 048
     Dates: start: 20100917
  45. BAYASPIRIN [Concomitant]
     Route: 048
  46. FLUCONAZOLE [Concomitant]
     Indication: PROPHYLAXIS
     Route: 048
     Dates: end: 20100115
  47. NEORAL [Concomitant]
     Indication: CASTLEMAN^S DISEASE
     Route: 048
     Dates: end: 20090318
  48. NEORAL [Concomitant]
     Indication: CASTLEMAN^S DISEASE
     Route: 048
     Dates: start: 20090319, end: 20090402
  49. NEORAL [Concomitant]
     Indication: CASTLEMAN^S DISEASE
     Route: 048
     Dates: start: 20090403, end: 20090416
  50. KADIAN [Concomitant]
     Route: 048
     Dates: end: 20100212
  51. THYRADIN [Concomitant]
     Indication: HYPOTHYROIDISM
     Dosage: 50?g and 100?g are alternate.
     Route: 048
     Dates: end: 20101201
  52. THYRADIN [Concomitant]
     Indication: HYPOTHYROIDISM
     Route: 048
     Dates: start: 20101202, end: 20101206
  53. THYRADIN [Concomitant]
     Indication: HYPOTHYROIDISM
     Route: 048
     Dates: start: 20101207
  54. CALONAL [Concomitant]
     Indication: PROPHYLAXIS
     Route: 048
     Dates: start: 20101211
  55. ALFAROL [Concomitant]
     Route: 048
     Dates: start: 20101202, end: 20101206
  56. ALFAROL [Concomitant]
     Route: 048
     Dates: start: 20101207, end: 20101210
  57. ALFAROL [Concomitant]
     Route: 048
     Dates: start: 20101211, end: 20110106
  58. LOXONIN [Concomitant]
     Indication: PROPHYLAXIS
     Route: 048
     Dates: start: 20100917

REACTIONS (8)
  - Epigastric discomfort [Recovered/Resolved]
  - Cardiomyopathy [Recovered/Resolved]
  - Shock [Recovered/Resolved]
  - Superior vena cava syndrome [Unknown]
  - Inferior vena caval occlusion [Unknown]
  - Thrombosis [Unknown]
  - Dehydration [Unknown]
  - Drug interaction [Unknown]
